FAERS Safety Report 8346956-6 (Version None)
Quarter: 2012Q2

REPORT INFORMATION
  Report Type: 
  Country: None (occurrence: None)
  Receive Date: 20120509
  Receipt Date: 20120427
  Transmission Date: 20120825
  Serious: Yes (Hospitalization)
  Sender: FDA-Public Use
  Company Number: GB-NAPPMUNDI-DEU-2012-0008896

PATIENT
  Sex: Female
  Weight: 86 kg

DRUGS (12)
  1. OXYCODONE HCL/NALOXONE HCL CR TAB [Suspect]
     Dosage: 140 MG, DAILY
     Route: 048
     Dates: start: 20120329, end: 20120403
  2. OXYCODONE HCL EXTENDED-RELEASE [Suspect]
     Indication: BREAKTHROUGH PAIN
     Dosage: 25 MG, DAILY
     Route: 048
     Dates: start: 20120416
  3. OXYCODONE HCL/NALOXONE HCL CR TAB [Suspect]
     Indication: PAIN
     Dosage: 160 MG, DAILY
     Route: 048
     Dates: start: 20120404
  4. OMEPRAZOLE [Concomitant]
     Indication: PROPHYLAXIS AGAINST GASTROINTESTINAL ULCER
     Dosage: 20 MG, DAILY
     Route: 048
     Dates: start: 20100309
  5. ESTRADERM [Concomitant]
     Indication: HORMONE REPLACEMENT THERAPY
     Dosage: 50 MCG, DAILY
     Route: 062
     Dates: start: 20111130
  6. DULOXETINE HYDROCHLORIDE [Concomitant]
     Indication: DEPRESSION
     Dosage: 90 MG, DAILY
     Route: 048
     Dates: start: 20100521
  7. ORUSTAT [Concomitant]
     Indication: OBESITY
     Dosage: 360 MG, DAILY
     Route: 048
     Dates: start: 20120315
  8. CELECOXIB [Concomitant]
     Indication: NECK PAIN
     Dosage: 400 MG, DAILY
     Route: 048
     Dates: start: 20100521
  9. TESTOSTERONE TRANSDERMAL PATCH [Concomitant]
     Indication: MENOPAUSE
     Dosage: 300 MG, DAILY
     Route: 062
     Dates: start: 20110902
  10. FUROSEMIDE [Concomitant]
     Indication: JOINT SWELLING
     Dosage: 20 MG, DAILY
     Route: 048
     Dates: start: 20120306
  11. AMITIPTYLINE [Concomitant]
     Indication: DEPRESSION
     Dosage: 100 MG, DAILY
     Route: 048
     Dates: start: 20120124
  12. FUROSEMIDE [Concomitant]
     Dosage: 40 MG, DAILY
     Route: 048
     Dates: start: 20120215

REACTIONS (2)
  - MYOCARDIAL ISCHAEMIA [None]
  - ANGINA PECTORIS [None]
